FAERS Safety Report 4889710-X (Version None)
Quarter: 2006Q1

REPORT INFORMATION
  Report Type: 
  Country: None (occurrence: None)
  Receive Date: 20060120
  Receipt Date: 20060106
  Transmission Date: 20060701
  Serious: Yes (Hospitalization)
  Sender: FDA-Public Use
  Company Number: 2005-136056-NL

PATIENT
  Age: 36 Year
  Sex: Female
  Weight: 72.6 kg

DRUGS (1)
  1. NUVARING [Suspect]
     Indication: ENDOMETRIOSIS
     Dosage: VAGINAL
     Route: 067
     Dates: start: 20041001, end: 20051118

REACTIONS (5)
  - DEEP VEIN THROMBOSIS [None]
  - GAIT DISTURBANCE [None]
  - PULMONARY EMBOLISM [None]
  - STRESS [None]
  - TACHYCARDIA [None]
